FAERS Safety Report 8592595-1 (Version None)
Quarter: 2012Q3

REPORT INFORMATION
  Report Type: 
  Country: None (occurrence: None)
  Receive Date: 20120814
  Receipt Date: 20120807
  Transmission Date: 20120928
  Serious: Yes (Other)
  Sender: FDA-Public Use
  Company Number: FR-PFIZER INC-2012191947

PATIENT
  Age: 22 Year
  Sex: Male
  Weight: 53 kg

DRUGS (14)
  1. TENORMIN [Concomitant]
     Dosage: 100 MG, 1X/DAY
  2. BACTRIM [Concomitant]
     Dosage: 400 MG, 1X/DAY
  3. CELL CEPT [Concomitant]
     Dosage: 1500 MG, 2X/DAY
  4. DOMPERIDONE [Concomitant]
  5. VALGANCICLOVIR [Concomitant]
     Dosage: 900 MG, 1X/DAY
  6. VITAMIN D [Concomitant]
  7. PRAVASTATIN [Suspect]
     Dosage: 40 MG, 1X/DAY
     Route: 048
     Dates: end: 20120726
  8. TACROLIMUS [Concomitant]
     Dosage: 10 MG, 1X/DAY
  9. PREDNISONE TAB [Concomitant]
     Dosage: 25 MG, 1X/DAY
  10. TRANXENE [Concomitant]
     Dosage: 20 MG, 1X/DAY
  11. IMODIUM [Concomitant]
  12. ZITHROMAX [Suspect]
     Dosage: 2 DF, 1X/DAY
     Route: 048
     Dates: end: 20120726
  13. CREON [Concomitant]
  14. NEXIUM [Concomitant]
     Dosage: 20 MG, 2X/DAY

REACTIONS (2)
  - CHOLESTASIS [None]
  - CYTOLYTIC HEPATITIS [None]
